FAERS Safety Report 15966619 (Version 1)
Quarter: 2019Q1

REPORT INFORMATION
  Report Type: Other
  Country: JP (occurrence: JP)
  Receive Date: 20190215
  Receipt Date: 20190215
  Transmission Date: 20190418
  Serious: Yes (Hospitalization)
  Sender: FDA-Public Use
  Company Number: JP-ACTELION-A-CH2017-164222

PATIENT
  Age: 49 Year
  Sex: Female

DRUGS (2)
  1. EPOPROSTENOL ACT [Suspect]
     Active Substance: EPOPROSTENOL
     Dosage: 2 NG/KG, PER MIN
     Route: 042
     Dates: start: 20171201
  2. EPOPROSTENOL ACT [Suspect]
     Active Substance: EPOPROSTENOL
     Indication: PULMONARY ARTERIAL HYPERTENSION
     Dosage: 10 NG/KG, PER MIN
     Route: 042
     Dates: end: 20171206

REACTIONS (2)
  - Pulmonary alveolar haemorrhage [Recovered/Resolved]
  - Platelet count decreased [Unknown]

NARRATIVE: CASE EVENT DATE: 20171206
